FAERS Safety Report 16935731 (Version 1)
Quarter: 2019Q4

REPORT INFORMATION
  Report Type: Spontaneous
  Country: US (occurrence: US)
  Receive Date: 20191018
  Receipt Date: 20191018
  Transmission Date: 20200122
  Serious: Yes (Other)
  Sender: FDA-Public Use
  Company Number: US-VERTEX PHARMACEUTICALS-2019-009952

PATIENT
  Age: 4 Year
  Sex: Male

DRUGS (1)
  1. ORKAMBI [Suspect]
     Active Substance: IVACAFTOR\LUMACAFTOR
     Indication: CYSTIC FIBROSIS
     Dosage: LUMACAFTOR 150MG/ IVACAFTOR 188MG; BID
     Route: 048
     Dates: start: 20190402

REACTIONS (1)
  - Cough [Unknown]

NARRATIVE: CASE EVENT DATE: 201909
